FAERS Safety Report 6738820-0 (Version None)
Quarter: 2010Q2

REPORT INFORMATION
  Report Type: 
  Country: None (occurrence: None)
  Receive Date: 20100520
  Receipt Date: 20100507
  Transmission Date: 20101027
  Serious: Yes (Hospitalization)
  Sender: FDA-Public Use
  Company Number: 2010AL000077

PATIENT
  Age: 65 Year
  Sex: Female
  Weight: 64 kg

DRUGS (12)
  1. PRALATREXATE (PRALATREXATE) [Suspect]
     Indication: HODGKIN'S DISEASE RECURRENT
     Dosage: 17 MG; QOW; IV
     Route: 042
     Dates: start: 20100119, end: 20100329
  2. GEMCITABINE [Suspect]
     Indication: HODGKIN'S DISEASE RECURRENT
     Dosage: 680 MG; QOW; IV
     Route: 042
     Dates: start: 20100120, end: 20100316
  3. DULOXETINE (CON.) [Concomitant]
  4. FOLIC ACID (CON.) [Concomitant]
  5. HEPARIN (CON.) [Concomitant]
  6. PRAMIPEXOLE (CON.) [Concomitant]
  7. ACETAMINOPHEN (CON.) [Concomitant]
  8. HYDROXYZINE PAMOATE (CON.) [Concomitant]
  9. LORAZEPAM (CON.) [Concomitant]
  10. ONDANSETRON (CON.) [Concomitant]
  11. PROCHLORPERAZINE (CON.) [Concomitant]
  12. PREV MEDS [Concomitant]

REACTIONS (5)
  - BLOOD ALBUMIN DECREASED [None]
  - BLOOD SODIUM DECREASED [None]
  - HAEMATOCRIT DECREASED [None]
  - HAEMOGLOBIN DECREASED [None]
  - PNEUMONITIS [None]
